FAERS Safety Report 12507948 (Version 1)
Quarter: 2016Q2

REPORT INFORMATION
  Report Type: Spontaneous
  Country: JP (occurrence: JP)
  Receive Date: 20160629
  Receipt Date: 20160629
  Transmission Date: 20160815
  Serious: Yes (Other)
  Sender: FDA-Public Use
  Company Number: JP-MYLANLABS-2016M1027042

PATIENT

DRUGS (4)
  1. CISPLATIN. [Concomitant]
     Active Substance: CISPLATIN
     Indication: METASTASES TO LUNG
     Dosage: 80MG/M2 ON DAY 1; REPEATED EVERY 28 DAYS
     Route: 065
  2. FLUOROURACIL. [Suspect]
     Active Substance: FLUOROURACIL
     Indication: OESOPHAGEAL SQUAMOUS CELL CARCINOMA
     Dosage: 800MG/M2 ON DAY 1-5; WAS REPEATED EVERY 28 DAYS
     Route: 065
  3. FLUOROURACIL. [Suspect]
     Active Substance: FLUOROURACIL
     Indication: METASTASES TO LUNG
     Dosage: 800MG/M2 ON DAY 1-5; WAS REPEATED EVERY 28 DAYS
     Route: 065
  4. CISPLATIN. [Concomitant]
     Active Substance: CISPLATIN
     Indication: OESOPHAGEAL SQUAMOUS CELL CARCINOMA
     Dosage: 80MG/M2 ON DAY 1; REPEATED EVERY 28 DAYS
     Route: 065

REACTIONS (1)
  - Hyperammonaemia [Recovered/Resolved]
